FAERS Safety Report 7590279-X (Version None)
Quarter: 2011Q3

REPORT INFORMATION
  Report Type: 
  Country: None (occurrence: None)
  Receive Date: 20110705
  Receipt Date: 20090928
  Transmission Date: 20111222
  Serious: Yes (Other)
  Sender: FDA-Public Use
  Company Number: US-BAYER-200938236NA

PATIENT
  Age: 71 Year
  Sex: Male
  Weight: 72 kg

DRUGS (27)
  1. RED BLOOD CELLS [Concomitant]
     Dosage: 4 U, UNK
     Route: 042
     Dates: start: 20030502
  2. CONTRAST MEDIA [Concomitant]
     Indication: CATHETERISATION CARDIAC
     Dosage: UNK
     Dates: start: 20030428
  3. LASIX [Concomitant]
     Dosage: UNK
  4. PLAVIX [Concomitant]
     Dosage: 75 MG, UNK
     Route: 048
  5. PROTAMINE SULFATE [Concomitant]
     Dosage: 500 ML, UNK, TOTAL
     Route: 042
     Dates: start: 20030502, end: 20030502
  6. VERSED [Concomitant]
     Dosage: UNK
     Route: 042
     Dates: start: 20030502
  7. COUMADIN [Concomitant]
     Dosage: 5 MG, QD
     Route: 048
  8. TRASYLOL [Suspect]
     Indication: CORONARY ARTERY BYPASS
     Dosage: 200 ML, CARDIOPLUMONARY BYPASS PRIME
     Dates: start: 20030502, end: 20030502
  9. ACETYLSALICYLIC ACID SRT [Concomitant]
     Dosage: 81 MG, QD
     Route: 048
  10. LANOXIN [Concomitant]
     Dosage: 0.125 MG, QD
     Route: 048
     Dates: start: 20030101
  11. PRAVACHOL [Concomitant]
     Indication: BLOOD CHOLESTEROL INCREASED
     Dosage: 40 MG, HS
     Route: 048
     Dates: start: 20030101
  12. EPINEPHRINE [Concomitant]
     Dosage: UNK
     Route: 042
     Dates: start: 20030502
  13. TRASYLOL [Suspect]
  14. COREG [Concomitant]
     Indication: BLOOD PRESSURE ABNORMAL
     Route: 048
  15. NORVASC [Concomitant]
     Dosage: 5 MG, QD
     Route: 048
  16. VASOTEC [Concomitant]
     Indication: BLOOD PRESSURE ABNORMAL
     Dosage: 5 MG, QD
     Route: 048
  17. DARVOCET [Concomitant]
     Dosage: UNK
     Route: 048
  18. LOPRESSOR [Concomitant]
     Dosage: 50 MG, BID
     Route: 048
  19. TRICOR [Concomitant]
     Dosage: 500 MG, QD
     Route: 048
  20. MORPHINE SULFATE [Concomitant]
     Dosage: UNK
     Route: 042
     Dates: start: 20030502
  21. ANCEF [Concomitant]
     Dosage: UNK
     Route: 042
     Dates: start: 20030502
  22. LISINOPRIL [Concomitant]
     Dosage: 5 MG, QD
     Route: 048
  23. HEPARIN [Concomitant]
     Dosage: 21500 U, UNK
     Route: 042
     Dates: start: 20030502
  24. CEFAZOLIN [Concomitant]
     Dosage: UNK
     Route: 042
     Dates: start: 20030502, end: 20030509
  25. PLATELETS [Concomitant]
     Dosage: 225 ML, UNK
     Route: 042
     Dates: start: 20030502
  26. LASIX [Concomitant]
     Indication: CARDIAC FAILURE CONGESTIVE
     Dosage: 40 MG, QD
     Route: 048
  27. LEVAQUIN [Concomitant]
     Dosage: 500 MG, QD
     Route: 048

REACTIONS (12)
  - RENAL FAILURE [None]
  - PAIN [None]
  - EMOTIONAL DISTRESS [None]
  - INJURY [None]
  - RENAL INJURY [None]
  - FEAR [None]
  - RENAL IMPAIRMENT [None]
  - CARDIOGENIC SHOCK [None]
  - ANXIETY [None]
  - STRESS [None]
  - UNEVALUABLE EVENT [None]
  - ANHEDONIA [None]
